FAERS Safety Report 10910463 (Version 1)
Quarter: 2015Q1

REPORT INFORMATION
  Report Type: Spontaneous
  Country: US (occurrence: US)
  Receive Date: 20150312
  Receipt Date: 20150312
  Transmission Date: 20150721
  Serious: No
  Sender: FDA-Public Use
  Company Number: US-SA-2014SA168139

PATIENT
  Age: 47 Year
  Sex: Male

DRUGS (2)
  1. NASACORT ALLERGY 24HR [Suspect]
     Active Substance: TRIAMCINOLONE ACETONIDE
     Dosage: START DATE: 2 WEEKS AGO
     Route: 065
  2. ANTIHYPERTENSIVES [Concomitant]
     Active Substance: UNSPECIFIED INGREDIENT
     Indication: BLOOD PRESSURE
     Dosage: START DATE: FOR 10 YEARS
     Route: 065

REACTIONS (10)
  - Myalgia [Unknown]
  - Hyperhidrosis [Unknown]
  - Asthenia [Unknown]
  - Nasal dryness [Unknown]
  - Dizziness [Unknown]
  - Hypertension [Unknown]
  - Palpitations [Unknown]
  - Insomnia [Unknown]
  - Epistaxis [Unknown]
  - Headache [Unknown]
